FAERS Safety Report 6211171-9 (Version None)
Quarter: 2009Q2

REPORT INFORMATION
  Report Type: 
  Country: None (occurrence: None)
  Receive Date: 20090602
  Receipt Date: 20090522
  Transmission Date: 20091009
  Serious: Yes (Hospitalization)
  Sender: FDA-Public Use
  Company Number: JP-ROCHE-626621

PATIENT
  Sex: Male
  Weight: 74 kg

DRUGS (10)
  1. XELODA [Suspect]
     Indication: RECTAL CANCER
     Dosage: DRUG: XELODA 300
     Route: 048
     Dates: start: 20080816, end: 20081217
  2. XELODA [Suspect]
     Route: 048
     Dates: start: 20090108, end: 20090218
  3. BEZAFIBRATE [Concomitant]
     Dosage: DRUG: BEZATATE
     Route: 048
  4. ALCENOL [Concomitant]
     Route: 048
  5. ACTOS [Concomitant]
     Route: 048
  6. HALCION [Concomitant]
     Route: 048
  7. AZELASTINE HCL [Concomitant]
     Route: 048
     Dates: start: 20090402
  8. CATAPRES [Concomitant]
     Route: 048
     Dates: start: 20090402
  9. ISCOTIN [Concomitant]
     Route: 048
     Dates: start: 20090402
  10. FAMOTIDINE [Concomitant]
     Route: 048
     Dates: start: 20090402

REACTIONS (1)
  - INTERSTITIAL LUNG DISEASE [None]
